FAERS Safety Report 14243183 (Version 2)
Quarter: 2018Q1

REPORT INFORMATION
  Report Type: Report from Study
  Country: None (occurrence: PL)
  Receive Date: 20171201
  Receipt Date: 20180214
  Transmission Date: 20180508
  Serious: Yes (Hospitalization)
  Sender: FDA-Public Use
  Company Number: PL-ABBVIE-17P-129-2172781-00

PATIENT
  Age: 32 Year
  Sex: Female
  Weight: 65 kg

DRUGS (9)
  1. ANAPRAN [Concomitant]
     Indication: RHEUMATOID ARTHRITIS
     Route: 048
     Dates: start: 201506
  2. HUMIRA [Suspect]
     Active Substance: ADALIMUMAB
     Indication: RHEUMATOID ARTHRITIS
     Route: 058
     Dates: start: 20170208, end: 20170521
  3. METHOTREXAT [Concomitant]
     Active Substance: METHOTREXATE
     Indication: RHEUMATOID ARTHRITIS
     Route: 048
     Dates: start: 20150527, end: 201601
  4. METHOTREXAT [Concomitant]
     Active Substance: METHOTREXATE
     Route: 058
     Dates: start: 201601, end: 20170623
  5. ABT-494 [Suspect]
     Active Substance: INVESTIGATIONAL PRODUCT
     Route: 048
     Dates: start: 20171115
  6. ABT-494 [Suspect]
     Active Substance: INVESTIGATIONAL PRODUCT
     Indication: RHEUMATOID ARTHRITIS
     Route: 048
     Dates: start: 20170522, end: 20171104
  7. ACIDUM FOLICUM [Concomitant]
     Active Substance: FOLIC ACID
     Indication: VITAMIN SUPPLEMENTATION
     Route: 048
     Dates: start: 20150527
  8. METHOTREXAT [Concomitant]
     Active Substance: METHOTREXATE
     Route: 058
     Dates: start: 20170701, end: 20171104
  9. HORMONAL INTRAUTERINE DEVICE [Concomitant]
     Indication: CONTRACEPTION
     Dosage: DOSE: RELEASING SYSTEM?FREQUENCY: CONTINUOUS
     Route: 067
     Dates: start: 2016

REACTIONS (1)
  - Anal fistula [Recovered/Resolved]

NARRATIVE: CASE EVENT DATE: 20171105
